FAERS Safety Report 6272417-4 (Version None)
Quarter: 2009Q3

REPORT INFORMATION
  Report Type: 
  Country: None (occurrence: None)
  Receive Date: 20090717
  Receipt Date: 20090710
  Transmission Date: 20100115
  Serious: Yes (Hospitalization)
  Sender: FDA-Public Use
  Company Number: JP-ASTRAZENECA-2009SE03212

PATIENT
  Age: 75 Year
  Sex: Male
  Weight: 59 kg

DRUGS (7)
  1. CRESTOR [Suspect]
     Indication: HYPERLIPIDAEMIA
     Route: 048
     Dates: start: 20090608, end: 20090615
  2. NEUQUINON [Concomitant]
     Indication: CORONARY ARTERY INSUFFICIENCY
     Route: 048
     Dates: start: 20070608, end: 20090611
  3. SIGMART [Concomitant]
     Indication: ANGINA PECTORIS
     Route: 048
  4. GASTER D [Concomitant]
     Indication: GASTRITIS
     Route: 048
     Dates: end: 20090615
  5. CEREKINON [Concomitant]
     Indication: GASTRITIS
     Route: 048
     Dates: end: 20090615
  6. EXCELASE [Concomitant]
     Indication: GASTRITIS
     Route: 048
     Dates: end: 20090615
  7. SM [Concomitant]
     Indication: GASTRITIS
     Route: 048
     Dates: end: 20090615

REACTIONS (1)
  - HEPATIC FUNCTION ABNORMAL [None]
